FAERS Safety Report 14251211 (Version 2)
Quarter: 2018Q1

REPORT INFORMATION
  Report Type: Spontaneous
  Country: US (occurrence: US)
  Receive Date: 20171205
  Receipt Date: 20180111
  Transmission Date: 20180508
  Serious: Yes (Other)
  Sender: FDA-Public Use
  Company Number: US-ALLERMED LABORATORIES, INC.-2036688

PATIENT
  Age: 20 Year
  Sex: Female
  Weight: 45.46 kg

DRUGS (4)
  1. HOUSE DUST MITE, DERMATOPHAGOIDES FARINAE [Suspect]
     Active Substance: DERMATOPHAGOIDES FARINAE
     Route: 058
     Dates: start: 20170116
  2. HOUSE DUST MITE, DERMATOPHAGOIDES PTERONYSSINUS [Suspect]
     Active Substance: DERMATOPHAGOIDES PTERONYSSINUS
     Indication: RHINITIS ALLERGIC
     Route: 058
     Dates: start: 20170116
  3. ALTERNARIA ALTERNATA. [Suspect]
     Active Substance: ALTERNARIA ALTERNATA
     Route: 058
     Dates: start: 20170116
  4. STEMPHYLIUM SOLANI. [Suspect]
     Active Substance: STEMPHYLIUM SOLANI
     Route: 058
     Dates: start: 20170116

REACTIONS (6)
  - Urticaria [Recovered/Resolved]
  - Chills [Recovered/Resolved]
  - Blood pressure decreased [Recovered/Resolved]
  - Heart rate abnormal [Recovered/Resolved]
  - Palpitations [Recovered/Resolved]
  - Injection site pruritus [Recovered/Resolved]

NARRATIVE: CASE EVENT DATE: 20170116
